FAERS Safety Report 10083587 (Version 1)
Quarter: 2014Q2

REPORT INFORMATION
  Report Type: Spontaneous
  Country: ES (occurrence: ES)
  Receive Date: 20140417
  Receipt Date: 20140417
  Transmission Date: 20141212
  Serious: Yes (Other)
  Sender: FDA-Public Use
  Company Number: ES-JNJFOC-20140411720

PATIENT
  Age: 53 Year
  Sex: Female

DRUGS (13)
  1. PALEXIA RETARD [Suspect]
     Indication: NEURALGIA
     Route: 048
  2. PALEXIA RETARD [Suspect]
     Indication: NEURALGIA
     Route: 048
  3. FENTANYL [Concomitant]
     Indication: NEURALGIA
     Route: 060
  4. LACTULOSE [Concomitant]
     Indication: PRODUCT USED FOR UNKNOWN INDICATION
     Route: 048
  5. OMEPRAZOLE [Concomitant]
     Indication: PRODUCT USED FOR UNKNOWN INDICATION
     Route: 048
  6. FLUOXETINE [Concomitant]
     Indication: PRODUCT USED FOR UNKNOWN INDICATION
     Route: 048
  7. MORPHINE [Concomitant]
     Indication: NEURALGIA
     Route: 037
  8. LORAZEPAM [Concomitant]
     Indication: PRODUCT USED FOR UNKNOWN INDICATION
     Route: 048
  9. DEXKETOPROFEN [Concomitant]
     Indication: PRODUCT USED FOR UNKNOWN INDICATION
     Route: 048
  10. CLEXANE [Concomitant]
     Indication: PRODUCT USED FOR UNKNOWN INDICATION
     Route: 058
  11. KETOROLAC [Concomitant]
     Indication: NEURALGIA
     Route: 042
  12. DEXAMETHASONE [Concomitant]
     Indication: NEURALGIA
     Route: 042
  13. PENTOXIFYLLINE [Concomitant]
     Indication: PRODUCT USED FOR UNKNOWN INDICATION
     Route: 048

REACTIONS (4)
  - Neurotoxicity [Recovered/Resolved]
  - Extrapyramidal disorder [Recovered/Resolved]
  - Eye movement disorder [Recovered/Resolved]
  - Myoclonus [Recovered/Resolved]
